FAERS Safety Report 25211894 (Version 1)
Quarter: 2025Q2

REPORT INFORMATION
  Report Type: Spontaneous
  Country: CN (occurrence: CN)
  Receive Date: 20250418
  Receipt Date: 20250418
  Transmission Date: 20250716
  Serious: Yes (Hospitalization)
  Sender: ABBVIE
  Company Number: CN-ABBVIE-6229704

PATIENT
  Age: 25 Year
  Sex: Female
  Weight: 45 kg

DRUGS (3)
  1. VENETOCLAX [Suspect]
     Active Substance: VENETOCLAX
     Indication: Neoplasm prophylaxis
     Dosage: 100 MILLIGRAM
     Route: 048
     Dates: start: 20250318, end: 20250411
  2. AZACITIDINE [Suspect]
     Active Substance: AZACITIDINE
     Indication: Neoplasm prophylaxis
     Dosage: 100 MILLIGRAM
     Route: 058
     Dates: start: 20250318, end: 20250324
  3. STERILE WATER FOR INJECTION [Concomitant]
     Active Substance: WATER
     Indication: Vehicle solution use
     Dosage: 4 MILLILITER
     Route: 058
     Dates: start: 20250318, end: 20250323

REACTIONS (1)
  - Myelosuppression [Not Recovered/Not Resolved]

NARRATIVE: CASE EVENT DATE: 20250402
